FAERS Safety Report 5611337-2 (Version None)
Quarter: 2008Q1

REPORT INFORMATION
  Report Type: 
  Country: None (occurrence: None)
  Receive Date: 20080201
  Receipt Date: 20080122
  Transmission Date: 20080703
  Serious: Yes (Other)
  Sender: FDA-Public Use
  Company Number: US-PFIZER INC-2007105376

PATIENT
  Sex: Female
  Weight: 85.7 kg

DRUGS (18)
  1. LYRICA [Suspect]
     Indication: NEUROPATHY PERIPHERAL
     Dates: start: 20070701, end: 20071207
  2. LYRICA [Suspect]
     Indication: POST HERPETIC NEURALGIA
  3. PROTONIX [Concomitant]
  4. ZOLOFT [Concomitant]
  5. DEPAKOTE [Concomitant]
  6. LEVOTHYROXINE SODIUM [Concomitant]
  7. PROPRANOLOL [Concomitant]
  8. WELLBUTRIN [Concomitant]
  9. TRAZODONE HCL [Concomitant]
  10. LORAZEPAM [Concomitant]
  11. NIFEDIPINE [Concomitant]
  12. LOPERAMIDE HCL [Concomitant]
  13. ALL OTHER THERAPEUTIC PRODUCTS [Concomitant]
  14. TRICOR [Concomitant]
  15. MONTELUKAST SODIUM [Concomitant]
  16. NASACORT [Concomitant]
  17. ALL OTHER THERAPEUTIC PRODUCTS [Concomitant]
  18. TYLENOL [Concomitant]

REACTIONS (4)
  - CONVULSION [None]
  - HEAD DISCOMFORT [None]
  - SOMNOLENCE [None]
  - SPEECH DISORDER [None]
